FAERS Safety Report 22092548 (Version 1)
Quarter: 2023Q1

REPORT INFORMATION
  Report Type: Spontaneous
  Country: DE (occurrence: DE)
  Receive Date: 20230314
  Receipt Date: 20230314
  Transmission Date: 20230418
  Serious: Yes (Life-Threatening, Congenital Anomaly, Other)
  Sender: FDA-Public Use
  Company Number: DE-EMA-DD-20230206-7207990-104515

PATIENT
  Sex: Female
  Weight: 3 kg

DRUGS (17)
  1. CISATRACURIUM BESYLATE [Suspect]
     Active Substance: CISATRACURIUM BESYLATE
     Indication: Product used for unknown indication
  2. SPIRONOLACTONE [Suspect]
     Active Substance: SPIRONOLACTONE
     Indication: Product used for unknown indication
     Dosage: 5 MILLIGRAM, BID
  3. LEVOSIMENDAN [Suspect]
     Active Substance: LEVOSIMENDAN
     Indication: Pulmonary hypertension
  4. MEROPENEM [Suspect]
     Active Substance: MEROPENEM
     Indication: Device related sepsis
  5. MIDAZOLAM HYDROCHLORIDE [Suspect]
     Active Substance: MIDAZOLAM HYDROCHLORIDE
     Indication: Product used for unknown indication
  6. SILDENAFIL CITRATE [Suspect]
     Active Substance: SILDENAFIL CITRATE
     Indication: Pulmonary hypertension
     Dosage: 1 MG (1MG INCREASE PER DOSE, FINAL DOSE 4X4MG)
  7. MORPHINE [Suspect]
     Active Substance: MORPHINE
     Indication: Product used for unknown indication
  8. ROCURONIUM BROMIDE [Suspect]
     Active Substance: ROCURONIUM BROMIDE
     Indication: Product used for unknown indication
  9. INDOMETHACIN [Suspect]
     Active Substance: INDOMETHACIN
     Indication: Patent ductus arteriosus
  10. VANCOMYCIN [Suspect]
     Active Substance: VANCOMYCIN
     Indication: Device related sepsis
  11. IBUPROFEN [Suspect]
     Active Substance: IBUPROFEN
     Indication: Patent ductus arteriosus
  12. MILRINONE [Suspect]
     Active Substance: MILRINONE
     Indication: Pulmonary hypertension
  13. NOREPINEPHRINE [Suspect]
     Active Substance: NOREPINEPHRINE
     Indication: Pulmonary hypertension
  14. MACITENTAN [Suspect]
     Active Substance: MACITENTAN
     Indication: Pulmonary hypertension
  15. DEXAMETHASONE [Concomitant]
     Active Substance: DEXAMETHASONE
     Indication: Product used for unknown indication
  16. NITRIC OXIDE [Concomitant]
     Active Substance: NITRIC OXIDE
     Indication: Pulmonary hypertension
  17. SILDENAFIL [Concomitant]
     Active Substance: SILDENAFIL
     Indication: Pulmonary hypertension
     Dosage: DAYS 2-9:STARTING AND FINAL DOSE 3.1MG/KG/DAY

REACTIONS (13)
  - Upper respiratory tract infection [Unknown]
  - Lethargy [Unknown]
  - Neurodevelopmental disorder [Unknown]
  - Acidosis [Unknown]
  - Device related sepsis [Unknown]
  - Dysphagia [Unknown]
  - Heart valve incompetence [Unknown]
  - Pulmonary hypertensive crisis [Recovered/Resolved]
  - Pallor [Unknown]
  - Drug ineffective [Unknown]
  - Respiratory failure [Unknown]
  - Patent ductus arteriosus [Unknown]
  - Bronchopulmonary dysplasia [Unknown]
